FAERS Safety Report 5809830-2 (Version None)
Quarter: 2008Q3

REPORT INFORMATION
  Report Type: 
  Country: None (occurrence: None)
  Receive Date: 20080714
  Receipt Date: 20080714
  Transmission Date: 20090109
  Serious: Yes (Other)
  Sender: FDA-Public Use
  Company Number: None

PATIENT
  Age: 2 Year
  Sex: Male
  Weight: 12.7007 kg

DRUGS (1)
  1. CIPRODEX [Suspect]
     Dosage: 3 DROPS 3 TIMES OTIC
     Dates: start: 20070501

REACTIONS (2)
  - EAR DISORDER [None]
  - TYMPANIC MEMBRANE PERFORATION [None]
